FAERS Safety Report 8357888-1 (Version None)
Quarter: 2012Q2

REPORT INFORMATION
  Report Type: 
  Country: None (occurrence: None)
  Receive Date: 20120511
  Receipt Date: 20120430
  Transmission Date: 20120825
  Serious: Yes (Other)
  Sender: FDA-Public Use
  Company Number: AUR-APL-2012-02127

PATIENT
  Sex: Female

DRUGS (6)
  1. LOSARTAN POTASSIUM [Concomitant]
  2. ZETIA [Concomitant]
  3. VENLAFAXINE [Suspect]
     Indication: DEPRESSION
     Dosage: (100 MG, 1 D),ORAL
     Route: 048
     Dates: start: 20000101
  4. VENLAFAXINE [Suspect]
     Indication: PANIC ATTACK
     Dosage: (100 MG, 1 D),ORAL
     Route: 048
     Dates: start: 20000101
  5. BISOPROLOL FUMARATE [Concomitant]
  6. LIPITOR [Concomitant]

REACTIONS (2)
  - ATRIOVENTRICULAR BLOCK [None]
  - CHEST PAIN [None]
